FAERS Safety Report 12455432 (Version 1)
Quarter: 2016Q2

REPORT INFORMATION
  Report Type: Spontaneous
  Country: US (occurrence: None)
  Receive Date: 20160609
  Receipt Date: 20160609
  Transmission Date: 20160815
  Serious: Yes (Hospitalization)
  Sender: FDA-Public Use
  Company Number: None

PATIENT
  Age: 93 Year
  Sex: Female
  Weight: 68.04 kg

DRUGS (16)
  1. CIPRO [Concomitant]
     Active Substance: CIPROFLOXACIN HYDROCHLORIDE
  2. KEFALEX [Concomitant]
     Active Substance: CEPHALEXIN
  3. CENTRUM SILVER [Concomitant]
     Active Substance: MINERALS\VITAMINS
  4. OXYBUTEN [Concomitant]
  5. ZOCOR [Concomitant]
     Active Substance: SIMVASTATIN
  6. LEXAPRO [Concomitant]
     Active Substance: ESCITALOPRAM OXALATE
  7. CALCIUM [Concomitant]
     Active Substance: CALCIUM
  8. DALVANCE [Suspect]
     Active Substance: DALBAVANCIN
     Indication: SKIN BACTERIAL INFECTION
     Dosage: ONE A WEEK APART
     Route: 042
     Dates: start: 20160415, end: 20160422
  9. DALVANCE [Suspect]
     Active Substance: DALBAVANCIN
     Indication: CELLULITIS
     Dosage: ONE A WEEK APART
     Route: 042
     Dates: start: 20160415, end: 20160422
  10. MYBETREQ [Concomitant]
  11. VITAMIN D [Concomitant]
     Active Substance: CHOLECALCIFEROL
  12. PROBIOTIC [Concomitant]
     Active Substance: PROBIOTICS NOS
  13. LAMOTIL [Concomitant]
  14. CORTZON [Concomitant]
  15. PRED [Concomitant]
     Active Substance: PREDNISONE
  16. MAGNESIUM OXIDE. [Concomitant]
     Active Substance: MAGNESIUM OXIDE

REACTIONS (3)
  - Adverse drug reaction [None]
  - Blister [None]
  - Pain [None]

NARRATIVE: CASE EVENT DATE: 20160415
